FAERS Safety Report 4809422-8 (Version None)
Quarter: 2005Q4

REPORT INFORMATION
  Report Type: 
  Country: None (occurrence: None)
  Receive Date: 20051021
  Receipt Date: 20051012
  Transmission Date: 20060501
  Serious: Yes (Other)
  Sender: FDA-Public Use
  Company Number: 2005131494

PATIENT
  Age: 61 Year
  Sex: Female
  Weight: 74.8435 kg

DRUGS (9)
  1. ZYRTEC [Suspect]
     Indication: MULTIPLE ALLERGIES
     Dates: start: 19980101
  2. GABAPENTIN [Suspect]
     Indication: NEUROPATHY
     Dosage: 900 MG
     Dates: start: 20050401
  3. ALL OTHER NON-THERAPEUTIC PRODUCTS (ALL OTHER NON-THERAPEUTIC PRODUCTS [Suspect]
     Indication: VULVAL CANCER
     Dates: start: 20040217
  4. SYNTHROID [Concomitant]
  5. OTHER ANALGESICS AND ANTIPYRETICS (OTHER ANALGESICS AND ANTIPYRETICS) [Concomitant]
  6. PROTONIX [Concomitant]
  7. ALLEGRA [Concomitant]
  8. HYDROCHLOROTHIAZIDE [Concomitant]
  9. PREMARIN [Concomitant]

REACTIONS (12)
  - BURNS THIRD DEGREE [None]
  - FISTULA [None]
  - GASTRIC PERFORATION [None]
  - GASTROINTESTINAL DISORDER [None]
  - HUNGER [None]
  - IATROGENIC INJURY [None]
  - NEUROPATHY [None]
  - RADIATION INJURY [None]
  - RESTLESS LEGS SYNDROME [None]
  - VAGINAL DISORDER [None]
  - VULVAL CANCER [None]
  - WEIGHT INCREASED [None]
